FAERS Safety Report 24821353 (Version 1)
Quarter: 2025Q1

REPORT INFORMATION
  Report Type: Spontaneous
  Country: US (occurrence: US)
  Receive Date: 20250108
  Receipt Date: 20250108
  Transmission Date: 20250408
  Serious: No
  Sender: SANOFI AVENTIS
  Company Number: US-SA-2025SA005877

PATIENT
  Age: 53 Year
  Sex: Female
  Weight: 65 kg

DRUGS (3)
  1. DUPIXENT [Suspect]
     Active Substance: DUPILUMAB
     Indication: Nasal polyps
     Dosage: 300 MG, QOW
     Route: 058
  2. DUPIXENT [Suspect]
     Active Substance: DUPILUMAB
     Dosage: 300 MG, QM
     Route: 058
     Dates: start: 202411
  3. ESTRADIOL [Concomitant]
     Active Substance: ESTRADIOL
     Dosage: BIW

REACTIONS (12)
  - Migraine [Recovered/Resolved]
  - Influenza [Recovering/Resolving]
  - Bronchitis [Recovering/Resolving]
  - Pyrexia [Recovered/Resolved]
  - Chills [Recovered/Resolved]
  - Pain [Recovered/Resolved]
  - Cough [Not Recovered/Not Resolved]
  - Nasal congestion [Recovered/Resolved]
  - Oropharyngeal pain [Recovered/Resolved]
  - Sinusitis [Recovering/Resolving]
  - Inappropriate schedule of product administration [Unknown]
  - Product prescribing issue [Unknown]

NARRATIVE: CASE EVENT DATE: 20241101
